FAERS Safety Report 7768733-7 (Version None)
Quarter: 2011Q3

REPORT INFORMATION
  Report Type: 
  Country: None (occurrence: None)
  Receive Date: 20110922
  Receipt Date: 20100929
  Transmission Date: 20111222
  Serious: No
  Sender: FDA-Public Use
  Company Number: US-ASTRAZENECA-2010SE46045

PATIENT
  Age: 58 Year
  Sex: Female
  Weight: 69.9 kg

DRUGS (12)
  1. SEROQUEL [Suspect]
     Indication: SLEEP DISORDER
     Route: 048
     Dates: start: 20000101
  2. SEROQUEL [Suspect]
     Dosage: EVERY OTHER DAY
     Route: 048
  3. SEROQUEL [Suspect]
     Dosage: EVERY OTHER DAY
     Route: 048
  4. LEVOTHYROXINE SODIUM [Concomitant]
  5. PREMARIN [Concomitant]
  6. SIMVASTATIN [Concomitant]
  7. SEROQUEL [Suspect]
     Indication: BIPOLAR DISORDER
     Route: 048
     Dates: start: 20000101
  8. CLONAZEPAM [Concomitant]
  9. LYRICA [Concomitant]
  10. LITHIUM CARBONATE [Concomitant]
  11. OMEPRAZOLE [Concomitant]
  12. TOPROL-XL [Concomitant]

REACTIONS (6)
  - NIGHTMARE [None]
  - INAPPROPRIATE SCHEDULE OF DRUG ADMINISTRATION [None]
  - SOMNOLENCE [None]
  - HEAD INJURY [None]
  - SLEEP DISORDER [None]
  - ABNORMAL DREAMS [None]
